FAERS Safety Report 7426142-4 (Version None)
Quarter: 2011Q2

REPORT INFORMATION
  Report Type: 
  Country: None (occurrence: None)
  Receive Date: 20110420
  Receipt Date: 20110411
  Transmission Date: 20111010
  Serious: Yes (Other)
  Sender: FDA-Public Use
  Company Number: PHHY2011BR30885

PATIENT
  Sex: Female

DRUGS (5)
  1. FORASEQ [Suspect]
     Indication: BRONCHITIS
     Dosage: UNK UKN, UNK
     Dates: start: 20090101
  2. ACETYLSALICYLIC ACID SRT [Concomitant]
     Dosage: UNK
  3. BENEGRIP [Concomitant]
     Dosage: 2 UNK, QD
  4. BUFFERIN [Concomitant]
     Dosage: 81MG 1 TABLET AFTER THE LUNCH
  5. LOSARTAN POTASSIUM [Concomitant]
     Dosage: 1 UNK, BID

REACTIONS (2)
  - CEREBRAL ISCHAEMIA [None]
  - DEMENTIA ALZHEIMER'S TYPE [None]
